FAERS Safety Report 8099544-3 (Version None)
Quarter: 2012Q1

REPORT INFORMATION
  Report Type: 
  Country: None (occurrence: None)
  Receive Date: 20120129
  Receipt Date: 20110923
  Transmission Date: 20120608
  Serious: No
  Sender: FDA-Public Use
  Company Number: US-ABBOTT-11P-163-0858201-00

PATIENT
  Age: 64 Year
  Sex: Female

DRUGS (5)
  1. TOPROL-XL [Concomitant]
     Indication: HEART RATE IRREGULAR
     Route: 048
  2. MULTI-VITAMIN [Concomitant]
     Indication: MEDICAL DIET
     Route: 048
  3. FOLIC ACID [Concomitant]
     Indication: PRODUCT USED FOR UNKNOWN INDICATION
     Route: 048
  4. HUMIRA [Suspect]
     Indication: PSORIASIS
     Dates: start: 20070501
  5. CRESTOR [Concomitant]
     Indication: BLOOD CHOLESTEROL
     Route: 048

REACTIONS (2)
  - TOOTHACHE [None]
  - TOOTH INFECTION [None]
